FAERS Safety Report 14955326 (Version 1)
Quarter: 2018Q2

REPORT INFORMATION
  Report Type: Spontaneous
  Country: JP (occurrence: JP)
  Receive Date: 20180531
  Receipt Date: 20180531
  Transmission Date: 20180711
  Serious: Yes (Other)
  Sender: FDA-Public Use
  Company Number: JP-ROCHE-2130353

PATIENT
  Age: 37 Year
  Sex: Female

DRUGS (1)
  1. LUCENTIS [Suspect]
     Active Substance: RANIBIZUMAB
     Indication: DIABETIC RETINAL OEDEMA
     Route: 031

REACTIONS (4)
  - Serous retinal detachment [Unknown]
  - Diabetic retinal oedema [Unknown]
  - Disease progression [Unknown]
  - Visual acuity reduced [Unknown]
